FAERS Safety Report 5718701-1 (Version None)
Quarter: 2008Q2

REPORT INFORMATION
  Report Type: 
  Country: None (occurrence: None)
  Receive Date: 20080425
  Receipt Date: 20080416
  Transmission Date: 20081010
  Serious: Yes (Death, Other)
  Sender: FDA-Public Use
  Company Number: NO-PFIZER INC-2008033585

PATIENT
  Sex: Female

DRUGS (1)
  1. DETRUSITOL SR [Suspect]
     Route: 048

REACTIONS (2)
  - DEATH [None]
  - SUICIDE ATTEMPT [None]
